FAERS Safety Report 5222157-5 (Version None)
Quarter: 2007Q1

REPORT INFORMATION
  Report Type: 
  Country: None (occurrence: None)
  Receive Date: 20070129
  Receipt Date: 20060809
  Transmission Date: 20070707
  Serious: No
  Sender: FDA-Public Use
  Company Number: US-GLAXOSMITHKLINE-A0616096A

PATIENT
  Sex: Female

DRUGS (2)
  1. WELLBUTRIN [Suspect]
  2. UNSPECIFIED MEDICATIONS [Concomitant]
     Indication: ILL-DEFINED DISORDER

REACTIONS (4)
  - DRUG INTERACTION [None]
  - ENERGY INCREASED [None]
  - NIGHTMARE [None]
  - SLEEP TALKING [None]
